FAERS Safety Report 8791122 (Version 1)
Quarter: 2012Q4

REPORT INFORMATION
  Report Type: Spontaneous
  Country: US (occurrence: None)
  Receive Date: 20120913
  Receipt Date: 20120913
  Transmission Date: 20130627
  Serious: Yes (Life-Threatening, Hospitalization)
  Sender: FDA-Public Use
  Company Number: None

PATIENT
  Sex: Female
  Weight: 52.16 kg

DRUGS (1)
  1. PREVACID [Suspect]
     Indication: GASTRITIS
     Dosage: 1 time dialy
     Dates: start: 20050101, end: 20120908

REACTIONS (1)
  - Convulsion [None]
